FAERS Safety Report 21457693 (Version 2)
Quarter: 2022Q4

REPORT INFORMATION
  Report Type: Spontaneous
  Country: FR (occurrence: None)
  Receive Date: 20221014
  Receipt Date: 20221019
  Transmission Date: 20230113
  Serious: Yes (Other)
  Sender: FDA-Public Use
  Company Number: 2022A346513

PATIENT
  Age: 65 Year
  Sex: Female
  Weight: 52 kg

DRUGS (3)
  1. OLAPARIB [Suspect]
     Active Substance: OLAPARIB
     Indication: Ovarian neoplasm
     Dosage: 100 MILLIGRAM, BID
     Route: 065
     Dates: start: 202209
  2. OLAPARIB [Suspect]
     Active Substance: OLAPARIB
     Indication: Ovarian neoplasm
     Dosage: 150 MILLIGRAM, BID
     Route: 065
     Dates: start: 20220623, end: 20220824
  3. BEVACIZUMAB [Concomitant]
     Active Substance: BEVACIZUMAB
     Dosage: UNKONWN UNKNOWN
     Route: 065

REACTIONS (3)
  - Anaemia [Recovering/Resolving]
  - Haematotoxicity [Recovering/Resolving]
  - Anaemia [Unknown]

NARRATIVE: CASE EVENT DATE: 20220101
